FAERS Safety Report 5571651-6 (Version None)
Quarter: 2007Q4

REPORT INFORMATION
  Report Type: 
  Country: None (occurrence: None)
  Receive Date: 20071221
  Receipt Date: 20071127
  Transmission Date: 20080405
  Serious: No
  Sender: FDA-Public Use
  Company Number: US-BAYER-200713051BCC

PATIENT
  Age: 71 Year
  Sex: Male
  Weight: 73 kg

DRUGS (3)
  1. ALEVE [Suspect]
     Indication: ARTHRALGIA
     Dosage: TOTAL DAILY DOSE: 220 MG  UNIT DOSE: 220 MG
     Route: 048
     Dates: start: 20051201, end: 20071031
  2. LISINOPRIL [Concomitant]
     Dates: start: 20070923
  3. TYLENOL (CAPLET) [Concomitant]
     Dates: start: 20051201

REACTIONS (1)
  - ALBUMIN URINE PRESENT [None]
